FAERS Safety Report 13477602 (Version 2)
Quarter: 2017Q2

REPORT INFORMATION
  Report Type: Not Available
  Country: None (occurrence: US)
  Receive Date: 20170424
  Receipt Date: 20170515
  Transmission Date: 20170830
  Serious: No
  Sender: FDA-Public Use
  Company Number: US-AKORN-40886

PATIENT
  Sex: Male

DRUGS (1)
  1. TIMOLOL MALEATE .5% SOLUTION, 5ML [Suspect]
     Active Substance: TIMOLOL MALEATE

REACTIONS (9)
  - Anxiety [Unknown]
  - Dry mouth [Unknown]
  - Insomnia [Unknown]
  - Diarrhoea [Unknown]
  - Hallucination [Unknown]
  - Nervousness [Unknown]
  - Nausea [Unknown]
  - Nightmare [Unknown]
  - Dizziness [Unknown]
